FAERS Safety Report 7499303-6 (Version None)
Quarter: 2011Q2

REPORT INFORMATION
  Report Type: 
  Country: None (occurrence: None)
  Receive Date: 20110524
  Receipt Date: 20110405
  Transmission Date: 20111010
  Serious: No
  Sender: FDA-Public Use
  Company Number: A0921652A

PATIENT
  Age: 72 Year
  Sex: Male
  Weight: 75.5 kg

DRUGS (2)
  1. ZYRTEC [Concomitant]
     Dosage: 10MG PER DAY
     Route: 048
  2. ARZERRA [Suspect]
     Dosage: 300MG SINGLE DOSE
     Route: 042
     Dates: start: 20110405, end: 20110405

REACTIONS (6)
  - BLOOD PRESSURE DECREASED [None]
  - ERYTHEMA [None]
  - HAEMOGLOBIN DECREASED [None]
  - CHEST DISCOMFORT [None]
  - RASH GENERALISED [None]
  - OFF LABEL USE [None]
